FAERS Safety Report 17514520 (Version 1)
Quarter: 2020Q1

REPORT INFORMATION
  Report Type: Report from Study
  Country: CO (occurrence: CO)
  Receive Date: 20200307
  Receipt Date: 20200307
  Transmission Date: 20200409
  Serious: Yes (Other)
  Sender: FDA-Public Use
  Company Number: CO-ROCHE-2562727

PATIENT
  Age: 9 Year
  Sex: Female

DRUGS (1)
  1. XOLAIR [Suspect]
     Active Substance: OMALIZUMAB
     Indication: ASTHMA
     Dosage: 225 MG, BIW
     Route: 058
     Dates: start: 20191009

REACTIONS (6)
  - Application site warmth [Recovered/Resolved]
  - Application site urticaria [Recovered/Resolved]
  - Cellulitis [Recovered/Resolved]
  - Paraesthesia [Not Recovered/Not Resolved]
  - Application site pain [Recovered/Resolved]
  - Application site erythema [Recovered/Resolved]

NARRATIVE: CASE EVENT DATE: 20200113
